FAERS Safety Report 12781774 (Version 1)
Quarter: 2016Q3

REPORT INFORMATION
  Report Type: Spontaneous
  Country: RU (occurrence: RU)
  Receive Date: 20160926
  Receipt Date: 20160926
  Transmission Date: 20161109
  Serious: Yes (Other)
  Sender: FDA-Public Use
  Company Number: ALCN2016RU006565

PATIENT
  Age: 3 Year
  Sex: Female

DRUGS (2)
  1. TOBREX [Suspect]
     Active Substance: TOBRAMYCIN
     Indication: CONJUNCTIVITIS
     Dosage: UNK
     Route: 047
     Dates: start: 20160915, end: 20160915
  2. OPHTALMOFERON [Concomitant]
     Indication: CONJUNCTIVITIS
     Dosage: UNK
     Route: 047
     Dates: start: 20160915

REACTIONS (8)
  - Suspected counterfeit product [Unknown]
  - Asphyxia [Recovered/Resolved]
  - Eye irritation [Recovered/Resolved]
  - Hypersensitivity [Recovered/Resolved]
  - Ocular hyperaemia [Recovered/Resolved]
  - Conjunctivitis allergic [Unknown]
  - Conjunctivitis bacterial [Unknown]
  - Viral upper respiratory tract infection [Unknown]

NARRATIVE: CASE EVENT DATE: 20160915
